FAERS Safety Report 9850629 (Version 1)
Quarter: 2013Q4

REPORT INFORMATION
  Report Type: Spontaneous
  Country: US (occurrence: None)
  Receive Date: 20131226
  Receipt Date: 20131226
  Transmission Date: 20140711
  Serious: Yes (Hospitalization)
  Sender: FDA-Public Use
  Company Number: PHEH2013US008374

PATIENT
  Age: 79 Year
  Sex: Female

DRUGS (2)
  1. DIOVAN [Suspect]
  2. TYLENOL (PARACETAMOL) [Concomitant]

REACTIONS (11)
  - Hepatic enzyme increased [None]
  - Sleep disorder [None]
  - Product taste abnormal [None]
  - Fungal infection [None]
  - Sunburn [None]
  - Fatigue [None]
  - Blood pressure fluctuation [None]
  - Rash erythematous [None]
  - Skin exfoliation [None]
  - Pruritus [None]
  - Rash generalised [None]
